FAERS Safety Report 8305141-4 (Version None)
Quarter: 2012Q2

REPORT INFORMATION
  Report Type: 
  Country: None (occurrence: None)
  Receive Date: 20120416
  Receipt Date: 20120330
  Transmission Date: 20120825
  Serious: Yes (Other)
  Sender: FDA-Public Use
  Company Number: 2011028772

PATIENT
  Age: 81 Year
  Sex: Female
  Weight: 78.0187 kg

DRUGS (20)
  1. CARAFATE [Concomitant]
  2. HIZENTRA [Suspect]
  3. HIZENTRA [Suspect]
  4. DIOVAN [Concomitant]
  5. OXYBUTRIN (OXYBUTYNIN) [Concomitant]
  6. ADVAIR DISKUS 100/50 [Concomitant]
  7. LEVAQUIN [Concomitant]
  8. HIZENTRA [Suspect]
     Indication: IMMUNODEFICIENCY COMMON VARIABLE
     Dosage: SEE IMAGE
     Route: 058
     Dates: start: 20111019, end: 20111019
  9. HIZENTRA [Suspect]
     Indication: IMMUNODEFICIENCY COMMON VARIABLE
     Dosage: SEE IMAGE
     Route: 058
     Dates: start: 20110323
  10. HIZENTRA [Suspect]
     Indication: IMMUNODEFICIENCY COMMON VARIABLE
     Dosage: SEE IMAGE
     Route: 058
     Dates: start: 20111221
  11. HIZENTRA [Suspect]
     Indication: IMMUNODEFICIENCY COMMON VARIABLE
     Dosage: SEE IMAGE
     Route: 058
     Dates: start: 20110323
  12. HIZENTRA [Suspect]
     Indication: IMMUNODEFICIENCY COMMON VARIABLE
     Dosage: SEE IMAGE
     Route: 058
     Dates: start: 20110323
  13. HIZENTRA [Suspect]
  14. HIZENTRA [Suspect]
  15. LOPERAMIDE [Concomitant]
  16. TRAZODONE HCL [Concomitant]
  17. ALBUTEROL [Concomitant]
  18. HIZENTRA [Suspect]
  19. SINGULAIR [Concomitant]
  20. BISOPROLOL FUMARATE [Concomitant]

REACTIONS (5)
  - GASTROENTERITIS VIRAL [None]
  - UPPER RESPIRATORY TRACT INFECTION [None]
  - DRUG DOSE OMISSION [None]
  - INFUSION SITE RASH [None]
  - LOCALISED INFECTION [None]
